FAERS Safety Report 4637615-1 (Version None)
Quarter: 2005Q2

REPORT INFORMATION
  Report Type: 
  Country: None (occurrence: None)
  Receive Date: 20050325
  Receipt Date: 20041123
  Transmission Date: 20051028
  Serious: No
  Sender: FDA-Public Use
  Company Number: USA041184527

PATIENT
  Age: 73 Year
  Sex: Female
  Weight: 61 kg

DRUGS (3)
  1. FORTEO [Suspect]
     Indication: OSTEOPOROSIS
  2. KADIAN [Concomitant]
  3. PHENERGAN [Concomitant]

REACTIONS (2)
  - NAUSEA [None]
  - PAIN IN EXTREMITY [None]
